FAERS Safety Report 7426344-7 (Version None)
Quarter: 2011Q2

REPORT INFORMATION
  Report Type: 
  Country: None (occurrence: None)
  Receive Date: 20110420
  Receipt Date: 20110413
  Transmission Date: 20111010
  Serious: Yes (Other)
  Sender: FDA-Public Use
  Company Number: B0714085A

PATIENT
  Sex: Female

DRUGS (3)
  1. TYVERB [Suspect]
     Indication: BREAST CANCER
     Dosage: 1250MG PER DAY
     Route: 048
     Dates: start: 20090901
  2. XELODA [Suspect]
     Indication: BREAST CANCER
     Dosage: 3500MG PER DAY
     Route: 048
     Dates: start: 20090901, end: 20110101
  3. DEXAMETHASONE [Suspect]
     Route: 030
     Dates: end: 20100301

REACTIONS (8)
  - SKIN FISSURES [None]
  - SKIN OEDEMA [None]
  - CUSHING'S SYNDROME [None]
  - PALMAR-PLANTAR ERYTHRODYSAESTHESIA SYNDROME [None]
  - RASH [None]
  - ERYTHEMA [None]
  - PALMAR ERYTHEMA [None]
  - SKIN MACERATION [None]
